FAERS Safety Report 7641433-X (Version None)
Quarter: 2011Q3

REPORT INFORMATION
  Report Type: 
  Country: None (occurrence: None)
  Receive Date: 20110728
  Receipt Date: 20110725
  Transmission Date: 20111222
  Serious: Yes (Death, Hospitalization)
  Sender: FDA-Public Use
  Company Number: US-SANOFI-AVENTIS-2011SA037144

PATIENT
  Age: 87 Year
  Sex: Male
  Weight: 83.9 kg

DRUGS (4)
  1. PLAVIX [Suspect]
     Route: 048
     Dates: start: 20080401, end: 20101018
  2. VITAMIN TAB [Concomitant]
  3. AMLODIPINE BESYLATE [Concomitant]
     Indication: BLOOD PRESSURE
     Route: 065
  4. ATORVASTATIN [Suspect]
     Route: 048
     Dates: start: 20000101, end: 20101023

REACTIONS (7)
  - BRAIN NEOPLASM MALIGNANT [None]
  - NAUSEA [None]
  - BONE NEOPLASM MALIGNANT [None]
  - MALAISE [None]
  - LUNG NEOPLASM MALIGNANT [None]
  - CONTUSION [None]
  - HEADACHE [None]
